FAERS Safety Report 18895415 (Version 3)
Quarter: 2022Q4

REPORT INFORMATION
  Report Type: Spontaneous
  Country: US (occurrence: US)
  Receive Date: 20210216
  Receipt Date: 20221011
  Transmission Date: 20230113
  Serious: No
  Sender: FDA-Public Use
  Company Number: US-AMGEN-USASP2021019437

PATIENT
  Sex: Male

DRUGS (2)
  1. ARANESP [Suspect]
     Active Substance: DARBEPOETIN ALFA
     Indication: Nephrogenic anaemia
     Dosage: UNK
     Route: 065
  2. ARANESP [Suspect]
     Active Substance: DARBEPOETIN ALFA
     Dosage: 100 MICROGRAM, Q2WK
     Route: 065
     Dates: start: 20210129

REACTIONS (3)
  - Wrong technique in product usage process [Unknown]
  - Device defective [Unknown]
  - Product label confusion [Unknown]

NARRATIVE: CASE EVENT DATE: 20210129
